FAERS Safety Report 8968229 (Version 1)
Quarter: 2012Q4

REPORT INFORMATION
  Report Type: Spontaneous
  Country: US (occurrence: None)
  Receive Date: 20121213
  Receipt Date: 20121213
  Transmission Date: 20130627
  Serious: Yes (Hospitalization)
  Sender: FDA-Public Use
  Company Number: None

PATIENT
  Age: 66 Year
  Sex: Male
  Weight: 128.2 kg

DRUGS (1)
  1. DAPTOMYCIN [Suspect]
     Indication: OSTEOMYELITIS
     Dosage: 750 MG   EVERY DAY   IV
     Route: 042
     Dates: start: 20120904, end: 20121020

REACTIONS (4)
  - Renal failure acute [None]
  - Dehydration [None]
  - No therapeutic response [None]
  - Renal tubular necrosis [None]
